FAERS Safety Report 4700959-9 (Version None)
Quarter: 2005Q2

REPORT INFORMATION
  Report Type: 
  Country: None (occurrence: None)
  Receive Date: 20050113
  Receipt Date: 20050113
  Transmission Date: 20051028
  Serious: No
  Sender: FDA-Public Use
  Company Number: None

PATIENT
  Sex: Male

DRUGS (2)
  1. METFORMIN 500MG [Suspect]
     Indication: DIABETES MELLITUS
     Dosage: 500MG ONE PO DAILY  2 WKS BETWEEN 4-16-01 + 3-13-02
     Route: 048
     Dates: start: 20010416
  2. METFORMIN 500MG [Suspect]
     Indication: DIABETES MELLITUS
     Dosage: 500MG ONE PO DAILY  2 WKS BETWEEN 4-16-01 + 3-13-02
     Route: 048
     Dates: start: 20020313

REACTIONS (2)
  - DIABETES MELLITUS INADEQUATE CONTROL [None]
  - THERAPEUTIC RESPONSE UNEXPECTED WITH DRUG SUBSTITUTION [None]
